FAERS Safety Report 6239480-8 (Version None)
Quarter: 2009Q2

REPORT INFORMATION
  Report Type: 
  Country: None (occurrence: None)
  Receive Date: 20090622
  Receipt Date: 20080829
  Transmission Date: 20091009
  Serious: Yes (Other)
  Sender: FDA-Public Use
  Company Number: US-PFIZER INC-2008065964

PATIENT
  Sex: Female
  Weight: 72.6 kg

DRUGS (16)
  1. LYRICA [Suspect]
     Indication: NEURALGIA
     Route: 048
     Dates: start: 20080101, end: 20080201
  2. DILANTIN [Suspect]
     Indication: EPILEPSY
     Dosage: UNK
     Route: 048
     Dates: start: 20020101
  3. PHENYTOIN AND PHENYTOIN SODIUM [Suspect]
     Indication: CONVULSION
     Dosage: UNK
     Dates: end: 20090101
  4. NEURONTIN [Suspect]
     Indication: EPILEPSY
     Route: 048
     Dates: start: 20030101, end: 20030101
  5. DONEPEZIL HCL [Suspect]
     Dosage: UNK
     Dates: start: 20070101, end: 20090101
  6. LAMICTAL [Suspect]
     Indication: CONVULSION
     Dosage: UNK
     Dates: start: 20090101, end: 20090101
  7. FENTANYL [Concomitant]
     Route: 062
  8. NORCO [Concomitant]
  9. ATIVAN [Concomitant]
  10. TRAZODONE HCL [Concomitant]
     Indication: SLEEP DISORDER
  11. DEPO-ESTRADIOL [Concomitant]
     Dosage: 1 EVERY 2 WEEKS
  12. FLEXERIL [Concomitant]
  13. LAXATIVES [Concomitant]
  14. ACETYLSALICYLIC ACID [Concomitant]
  15. VITAMINS [Concomitant]
  16. BIOTIN [Concomitant]

REACTIONS (4)
  - ANTICONVULSANT DRUG LEVEL ABNORMAL [None]
  - CONVULSION [None]
  - GRAND MAL CONVULSION [None]
  - SPINAL FRACTURE [None]
